FAERS Safety Report 14159190 (Version 1)
Quarter: 2017Q4

REPORT INFORMATION
  Report Type: Spontaneous
  Country: FR (occurrence: FR)
  Receive Date: 20171103
  Receipt Date: 20171103
  Transmission Date: 20180321
  Serious: Yes (Hospitalization)
  Sender: FDA-Public Use
  Company Number: FR-B. BRAUN MEDICAL INC.-2033211

PATIENT
  Age: 63 Year
  Sex: Female

DRUGS (5)
  1. LEVOTHYROXINE. [Concomitant]
     Active Substance: LEVOTHYROXINE
  2. CEFTRIAXONE. [Suspect]
     Active Substance: CEFTRIAXONE
  3. TYSABRI [Concomitant]
     Active Substance: NATALIZUMAB
  4. METRONIDAZOLE. [Suspect]
     Active Substance: METRONIDAZOLE
     Indication: PNEUMONIA
     Route: 042
     Dates: start: 20170927, end: 20171001
  5. LEVETIRACETAM. [Concomitant]
     Active Substance: LEVETIRACETAM

REACTIONS (2)
  - Hepatocellular injury [Recovering/Resolving]
  - Jaundice [Recovering/Resolving]
